FAERS Safety Report 14783033 (Version 1)
Quarter: 2018Q2

REPORT INFORMATION
  Report Type: Spontaneous
  Country: US (occurrence: US)
  Receive Date: 20180412
  Receipt Date: 20180412
  Transmission Date: 20180711
  Serious: Yes (Hospitalization)
  Sender: FDA-Public Use
  Company Number: None

PATIENT
  Age: 52 Year
  Sex: Male
  Weight: 73.1 kg

DRUGS (16)
  1. ATORVASTATIN [Concomitant]
     Active Substance: ATORVASTATIN
  2. VITAMIN D3 [Concomitant]
     Active Substance: CHOLECALCIFEROL
  3. LIDODERM [Concomitant]
     Active Substance: LIDOCAINE
  4. LEE011 , RIBOCICLIB [Suspect]
     Active Substance: RIBOCICLIB
     Indication: SARCOMA
     Dosage: ?          OTHER FREQUENCY:DAY 1 + 6;?
     Route: 042
     Dates: start: 201803, end: 20180404
  5. GEMCITABINE [Suspect]
     Active Substance: GEMCITABINE\GEMCITABINE HYDROCHLORIDE
     Indication: SARCOMA
     Dosage: ?          OTHER FREQUENCY:DAY 8-14;?
     Route: 048
     Dates: start: 2018, end: 20180404
  6. PERCOCET [Concomitant]
     Active Substance: ACETAMINOPHEN\OXYCODONE HYDROCHLORIDE
  7. SENNA [Concomitant]
     Active Substance: SENNA LEAF\SENNOSIDES\SENNOSIDES A AND B
  8. OMEPRAZOLE. [Concomitant]
     Active Substance: OMEPRAZOLE
  9. MIRALAX [Concomitant]
     Active Substance: POLYETHYLENE GLYCOL 3350
  10. MIRTAZAPINE. [Concomitant]
     Active Substance: MIRTAZAPINE
  11. ONDANSETRON [Concomitant]
     Active Substance: ONDANSETRON
  12. MULTIVITAMINS [Concomitant]
     Active Substance: VITAMINS
  13. METOPROLOL. [Concomitant]
     Active Substance: METOPROLOL
  14. MESALAMINE. [Concomitant]
     Active Substance: MESALAMINE
  15. COMPAZINE [Concomitant]
     Active Substance: PROCHLORPERAZINE MALEATE
  16. OLANZAPINE. [Concomitant]
     Active Substance: OLANZAPINE

REACTIONS (1)
  - Dyspnoea [None]

NARRATIVE: CASE EVENT DATE: 20180327
